FAERS Safety Report 8464232-8 (Version None)
Quarter: 2012Q2

REPORT INFORMATION
  Report Type: 
  Country: None (occurrence: None)
  Receive Date: 20120625
  Receipt Date: 20110627
  Transmission Date: 20120825
  Serious: Yes (Other)
  Sender: FDA-Public Use
  Company Number: BR-ROCHE-786060

PATIENT
  Sex: Female
  Weight: 56 kg

DRUGS (4)
  1. FLUNITRAZEPAM [Concomitant]
     Indication: SLEEP DISORDER THERAPY
     Dosage: FREQUENCY: EVERY NIGHT
  2. BONIVA [Suspect]
     Indication: OSTEOPENIA
     Dosage: EXPIRE DATE JULY 2013.
     Route: 048
  3. SERTRALINE HYDROCHLORIDE [Concomitant]
     Indication: DEPRESSION
  4. ATENOLOL [Concomitant]
     Indication: HYPERTENSION
     Dosage: FREQUENCY: ONCE A DAY

REACTIONS (5)
  - FRACTURE [None]
  - LOW DENSITY LIPOPROTEIN ABNORMAL [None]
  - FALL [None]
  - PAIN [None]
  - DIARRHOEA [None]
